FAERS Safety Report 21346535 (Version 1)
Quarter: 2022Q3

REPORT INFORMATION
  Report Type: Spontaneous
  Country: US (occurrence: US)
  Receive Date: 20220917
  Receipt Date: 20220917
  Transmission Date: 20221027
  Serious: No
  Sender: FDA-Public Use
  Company Number: US-GSK-US2022129308

PATIENT
  Sex: Male

DRUGS (1)
  1. FLOVENT HFA [Suspect]
     Active Substance: FLUTICASONE PROPIONATE
     Indication: Asthma
     Dosage: MEDICATION PRESCRIBED TO BE TAKEN TWICE DAILY
     Dates: start: 202206

REACTIONS (2)
  - Device use error [Unknown]
  - Drug ineffective [Unknown]
